FAERS Safety Report 22656237 (Version 4)
Quarter: 2023Q4

REPORT INFORMATION
  Report Type: Spontaneous
  Country: US (occurrence: US)
  Receive Date: 20230629
  Receipt Date: 20231208
  Transmission Date: 20240109
  Serious: No
  Sender: FDA-Public Use
  Company Number: US-SA-SAC20230626000774

PATIENT
  Age: 61 Year
  Sex: Female

DRUGS (2)
  1. DUPIXENT [Suspect]
     Active Substance: DUPILUMAB
     Indication: Nasal polyps
     Dosage: 600 MG, 1X
     Route: 058
     Dates: start: 20230608, end: 20230608
  2. DUPIXENT [Suspect]
     Active Substance: DUPILUMAB
     Indication: Asthma
     Dosage: 300 MG, QOW
     Route: 058
     Dates: start: 202306

REACTIONS (8)
  - Injection site warmth [Unknown]
  - Injection site haemorrhage [Unknown]
  - Pain in extremity [Not Recovered/Not Resolved]
  - Urticaria [Unknown]
  - Injection site induration [Unknown]
  - Injection site swelling [Unknown]
  - Injection site erythema [Unknown]
  - Incorrect dose administered [Unknown]

NARRATIVE: CASE EVENT DATE: 20230101
